FAERS Safety Report 6172450-7 (Version None)
Quarter: 2009Q2

REPORT INFORMATION
  Report Type: 
  Country: None (occurrence: None)
  Receive Date: 20090424
  Receipt Date: 20081212
  Transmission Date: 20091009
  Serious: No
  Sender: FDA-Public Use
  Company Number: ALL1-2008-03425

PATIENT

DRUGS (1)
  1. VYVANSE [Suspect]
     Dosage: 70 MG, 1X/DAY:QD, ORAL ; 50 MG, 1X/DAY:QD, ORAL

REACTIONS (2)
  - DRUG INEFFECTIVE [None]
  - INSOMNIA [None]
